FAERS Safety Report 6805089-8 (Version None)
Quarter: 2010Q2

REPORT INFORMATION
  Report Type: 
  Country: None (occurrence: None)
  Receive Date: 20100628
  Receipt Date: 20070816
  Transmission Date: 20101027
  Serious: Yes (Hospitalization, Other)
  Sender: FDA-Public Use
  Company Number: US-PFIZER INC-2007068529

PATIENT
  Sex: Female

DRUGS (3)
  1. GEODON [Suspect]
     Dates: start: 20070801, end: 20070801
  2. BETA BLOCKING AGENTS [Concomitant]
  3. ANTIHYPERTENSIVES [Concomitant]

REACTIONS (4)
  - BLOOD PRESSURE DIASTOLIC INCREASED [None]
  - DIZZINESS [None]
  - SYNCOPE [None]
  - VISION BLURRED [None]
